FAERS Safety Report 4808502-0 (Version None)
Quarter: 2005Q4

REPORT INFORMATION
  Report Type: 
  Country: None (occurrence: None)
  Receive Date: 20051025
  Receipt Date: 20051017
  Transmission Date: 20060501
  Serious: Yes (Other)
  Sender: FDA-Public Use
  Company Number: 2005SE05902

PATIENT
  Sex: Male

DRUGS (5)
  1. METOPROLOL SUCCINATE [Suspect]
     Indication: MYOCARDIAL INFARCTION
     Route: 048
     Dates: start: 20030301
  2. SIMVASTATIN [Concomitant]
     Dates: start: 20030301
  3. NITROMEX [Concomitant]
     Dates: start: 20030301
  4. ASPIRIN [Concomitant]
  5. ZYRLEX [Concomitant]
     Indication: HYPERSENSITIVITY

REACTIONS (6)
  - AMNESIA [None]
  - BRADYCARDIA [None]
  - DYSGEUSIA [None]
  - FATIGUE [None]
  - NERVOUSNESS [None]
  - PERIPHERAL COLDNESS [None]
